FAERS Safety Report 7721497-5 (Version None)
Quarter: 2011Q3

REPORT INFORMATION
  Report Type: 
  Country: None (occurrence: None)
  Receive Date: 20110831
  Receipt Date: 20110824
  Transmission Date: 20111222
  Serious: No
  Sender: FDA-Public Use
  Company Number: US-BAYER-2011-077688

PATIENT
  Sex: Female

DRUGS (3)
  1. YASMIN [Suspect]
     Indication: AMENORRHOEA
  2. YASMIN [Suspect]
     Indication: HORMONE LEVEL ABNORMAL
  3. YASMIN [Suspect]
     Indication: POLYCYSTIC OVARIES

REACTIONS (1)
  - URTICARIA [None]
